FAERS Safety Report 10089574 (Version 2)
Quarter: 2014Q2

REPORT INFORMATION
  Report Type: Spontaneous
  Country: CO (occurrence: CO)
  Receive Date: 20140421
  Receipt Date: 20140505
  Transmission Date: 20141212
  Serious: Yes (Other)
  Sender: FDA-Public Use
  Company Number: CO-PFIZER INC-2014108011

PATIENT
  Age: 80 Year
  Sex: Male

DRUGS (8)
  1. LIPITOR [Suspect]
     Indication: CORONARY ARTERY INSUFFICIENCY
     Dosage: 10 MG, 1X/DAY
     Route: 048
     Dates: start: 1999
  2. LIPITOR [Suspect]
     Dosage: 20 MG, DAILY
  3. ASA [Concomitant]
     Indication: CORONARY ARTERY INSUFFICIENCY
     Dosage: UNKNOWN DOSE
  4. ASA [Concomitant]
     Dosage: 100 MG, UNK
  5. PLAVIX [Concomitant]
     Indication: CORONARY ARTERY INSUFFICIENCY
     Dosage: UNKNOWN DOSE
  6. PLAVIX [Concomitant]
     Dosage: 75 MG, UNK
  7. ENALAPRIL [Concomitant]
     Indication: CORONARY ARTERY INSUFFICIENCY
     Dosage: UNKNOWN DOSE
  8. ENALAPRIL [Concomitant]
     Dosage: 5 MG, UNK

REACTIONS (1)
  - Coronary artery insufficiency [Recovered/Resolved]
